FAERS Safety Report 5979368-0 (Version None)
Quarter: 2008Q4

REPORT INFORMATION
  Report Type: 
  Country: None (occurrence: None)
  Receive Date: 20081204
  Receipt Date: 20081126
  Transmission Date: 20090506
  Serious: Yes (Other)
  Sender: FDA-Public Use
  Company Number: US-GENENTECH-270975

PATIENT
  Age: 64 Year
  Sex: Male

DRUGS (5)
  1. AVASTIN [Suspect]
     Indication: RECTAL CANCER
     Dosage: 5 MG/KG, DAYS 1+15
     Dates: start: 20080411, end: 20080722
  2. OXALIPLATIN [Suspect]
     Indication: RECTAL CANCER
     Dosage: 100 MG/M2, Q2W
     Dates: start: 20080411
  3. FLUOROURACIL [Concomitant]
     Indication: RECTAL CANCER
     Dosage: 400 MG/M2, Q2W
     Dates: start: 20080411
  4. FLUOROURACIL [Concomitant]
     Dosage: 2400 MG/M2, Q2W
  5. LEUCOVORIN CALCIUM [Concomitant]
     Indication: RECTAL CANCER
     Dosage: 200 MG/M2, Q2W
     Dates: start: 20080411

REACTIONS (1)
  - URINARY INCONTINENCE [None]
